FAERS Safety Report 9657632 (Version 3)
Quarter: 2013Q4

REPORT INFORMATION
  Report Type: Spontaneous
  Country: JP (occurrence: JP)
  Receive Date: 20131030
  Receipt Date: 20131206
  Transmission Date: 20140711
  Serious: Yes (Other)
  Sender: FDA-Public Use
  Company Number: JP-PFIZER INC-2013309212

PATIENT
  Sex: Male

DRUGS (7)
  1. LYRICA [Suspect]
     Dosage: 450 MG/DAY
     Route: 048
  2. NEUROTROPIN [Concomitant]
     Dosage: UNK
  3. TEPRENONE [Concomitant]
     Dosage: UNK
  4. LANSOPRAZOLE [Concomitant]
     Dosage: UNK
  5. BONALON [Concomitant]
     Dosage: UNK
  6. EDIROL [Concomitant]
     Dosage: UNK
  7. OPALMON [Concomitant]
     Dosage: UNK

REACTIONS (1)
  - Blood potassium increased [Recovering/Resolving]
